FAERS Safety Report 4389083-5 (Version None)
Quarter: 2004Q3

REPORT INFORMATION
  Report Type: 
  Country: None (occurrence: None)
  Receive Date: 20040702
  Receipt Date: 20040322
  Transmission Date: 20050211
  Serious: Yes (Hospitalization)
  Sender: FDA-Public Use
  Company Number: 200411167FR

PATIENT
  Age: 78 Year
  Sex: Female
  Weight: 90 kg

DRUGS (9)
  1. RIFADIN [Suspect]
     Indication: GASTROINTESTINAL HAEMORRHAGE
     Route: 042
     Dates: start: 20040115, end: 20040223
  2. RIFADIN [Suspect]
     Indication: IMPLANT SITE INFECTION
     Route: 042
     Dates: start: 20040115, end: 20040223
  3. CLINDAMYCIN HCL [Suspect]
     Indication: IMPLANT SITE INFECTION
     Route: 042
     Dates: start: 20040127, end: 20040223
  4. MOPRAL [Suspect]
     Indication: STRESS ULCER
     Route: 042
     Dates: start: 20040211, end: 20040225
  5. CORDARONE [Concomitant]
     Indication: ATRIAL FIBRILLATION
     Dates: start: 20040201
  6. CALCIPARINE [Concomitant]
     Dates: start: 20040101, end: 20040101
  7. VANCOCIN HCL [Concomitant]
     Indication: STREPTOCOCCAL SEPSIS
     Dates: start: 20040101
  8. GENTALLINE [Concomitant]
     Indication: STREPTOCOCCAL SEPSIS
     Dates: start: 20040101
  9. IZILOX [Concomitant]
     Indication: STREPTOCOCCAL SEPSIS
     Dates: start: 20040101, end: 20040101

REACTIONS (22)
  - ATRIAL FIBRILLATION [None]
  - COMA [None]
  - CONFUSIONAL STATE [None]
  - CONVULSION [None]
  - CYANOSIS [None]
  - DISORIENTATION [None]
  - ELECTROENCEPHALOGRAM ABNORMAL [None]
  - GASTROINTESTINAL DISORDER [None]
  - HAEMOGLOBIN DECREASED [None]
  - HYPOTENSION [None]
  - LOSS OF CONSCIOUSNESS [None]
  - LUMBAR PUNCTURE ABNORMAL [None]
  - MALAISE [None]
  - MELAENA [None]
  - MYOCLONUS [None]
  - OVERDOSE [None]
  - PYREXIA [None]
  - RENAL FAILURE [None]
  - SOMNOLENCE [None]
  - STATUS EPILEPTICUS [None]
  - SYNCOPE [None]
  - THROMBOSIS [None]
